FAERS Safety Report 4624450-3 (Version None)
Quarter: 2005Q1

REPORT INFORMATION
  Report Type: 
  Country: None (occurrence: None)
  Receive Date: 20050330
  Receipt Date: 20050330
  Transmission Date: 20050727
  Serious: Yes (Death)
  Sender: FDA-Public Use
  Company Number: None

PATIENT
  Age: 44 Year
  Sex: Female

DRUGS (5)
  1. NEURONTIN [Suspect]
     Indication: PAIN
     Dosage: 2400MG DAILY, ORAL
     Route: 048
     Dates: start: 19990101, end: 20030623
  2. CELEBREX [Concomitant]
  3. VIOXX [Concomitant]
  4. PREMARIN [Concomitant]
  5. MEPERIDINE HCL [Concomitant]

REACTIONS (2)
  - COMPLETED SUICIDE [None]
  - INTENTIONAL MISUSE [None]
